FAERS Safety Report 16621684 (Version 1)
Quarter: 2019Q3

REPORT INFORMATION
  Report Type: Spontaneous
  Country: DE (occurrence: DE)
  Receive Date: 20190723
  Receipt Date: 20190723
  Transmission Date: 20191004
  Serious: Yes (Death, Hospitalization)
  Sender: FDA-Public Use
  Company Number: DE-TEVA-2019-DE-1079968

PATIENT
  Age: 73 Year
  Sex: Female
  Weight: 60 kg

DRUGS (9)
  1. PANTOPRAZOL [Concomitant]
     Active Substance: PANTOPRAZOLE SODIUM
     Dosage: 40 MG, 1-0-0-0, TABLETS
     Route: 048
  2. BISOPROLOL [Concomitant]
     Active Substance: BISOPROLOL
     Dosage: 5 MG, 1-0-1-0, TABLETS
     Route: 048
  3. IRINOTECAN [Suspect]
     Active Substance: IRINOTECAN
     Dosage: NK MG/M2, BY SCHEME, LAST ON 28.12.2017, SOLUTION FOR INJECTION/INFUSION
     Route: 042
  4. ASPIRIN. [Concomitant]
     Active Substance: ASPIRIN
     Dosage: 100 MG, 1-0-0-0, TABLETS
     Route: 048
  5. FLUOROURACIL. [Suspect]
     Active Substance: FLUOROURACIL
     Dosage: NK MG/M2, BY SCHEME, LAST ON 28.12.2017, SOLUTION FOR INJECTION/INFUSION
     Route: 042
  6. QUINAPRIL. [Concomitant]
     Active Substance: QUINAPRIL
     Dosage: 20 MG, 0-1-0-0, TABLETS
     Route: 048
  7. HYDROCHLOROTHIAZID [Concomitant]
     Active Substance: HYDROCHLOROTHIAZIDE
     Dosage: 12.5 MG, 0-1-0-0, TABLETS
     Route: 048
  8. CALCIUMFOLINAT [Suspect]
     Active Substance: LEUCOVORIN CALCIUM
     Dosage: NK MG/M2, BY SCHEME, LAST ON 28.12.2017, SOLUTION FOR INJECTION/INFUSION
     Route: 042
  9. URSOFALK 250MG [Concomitant]
     Dosage: 250 MG, 1-0-1-0, CAPSULES
     Route: 048

REACTIONS (5)
  - Nausea [Unknown]
  - General physical health deterioration [Unknown]
  - Vomiting [Unknown]
  - Fatigue [Unknown]
  - Diarrhoea [Unknown]
